FAERS Safety Report 10417760 (Version 1)
Quarter: 2014Q2

REPORT INFORMATION
  Report Type: Spontaneous
  Country: US (occurrence: None)
  Receive Date: 20140609
  Receipt Date: 20140609
  Transmission Date: 20141212
  Serious: No
  Sender: FDA-Public Use
  Company Number: 2014TUS001313

PATIENT
  Age: 66 Year
  Sex: Male
  Weight: 68 kg

DRUGS (5)
  1. BRINTELLIX [Suspect]
     Indication: MAJOR DEPRESSION
     Route: 048
     Dates: start: 20140205
  2. VITAMIN C /00008001/ (ASCORBIC ACID) [Concomitant]
  3. GLUCOSAMINE [Concomitant]
  4. VITAMIN D3 (COLECALCIFEROL) [Concomitant]
  5. MAGNESIUM [Concomitant]

REACTIONS (4)
  - Depressed mood [None]
  - Asthenopia [None]
  - Nausea [None]
  - Diarrhoea [None]
